FAERS Safety Report 17982173 (Version 1)
Quarter: 2020Q3

REPORT INFORMATION
  Report Type: Spontaneous
  Country: US (occurrence: US)
  Receive Date: 20200703
  Receipt Date: 20200703
  Transmission Date: 20201103
  Serious: Yes (Other)
  Sender: FDA-Public Use
  Company Number: None

PATIENT
  Sex: Female

DRUGS (3)
  1. REMDESIVIR. [Suspect]
     Active Substance: REMDESIVIR
  2. ATORVASTATIN [Concomitant]
     Active Substance: ATORVASTATIN
  3. NOREPINEPHRINE. [Concomitant]
     Active Substance: NOREPINEPHRINE

REACTIONS (4)
  - Aspartate aminotransferase increased [None]
  - Acute kidney injury [None]
  - Cardiac arrest [None]
  - Alanine aminotransferase increased [None]

NARRATIVE: CASE EVENT DATE: 20200702
